FAERS Safety Report 8019526-7 (Version None)
Quarter: 2012Q1

REPORT INFORMATION
  Report Type: 
  Country: None (occurrence: None)
  Receive Date: 20120103
  Receipt Date: 20111230
  Transmission Date: 20120608
  Serious: Yes (Death, Hospitalization)
  Sender: FDA-Public Use
  Company Number: PHHY2011FR84506

PATIENT
  Sex: Female
  Weight: 52 kg

DRUGS (7)
  1. PLAVIX [Concomitant]
     Indication: ARTHRITIS
     Dosage: 75 MG, QD
     Route: 065
     Dates: start: 20040101
  2. LASIX [Concomitant]
     Indication: CARDIAC FAILURE
     Dosage: 20 MG, QD
     Route: 065
     Dates: start: 20060101
  3. LASIX [Concomitant]
     Indication: HYPERTENSION
  4. ACETAMINOPHEN AND TRAMADOL HCL [Concomitant]
     Indication: WOUND COMPLICATION
     Route: 065
     Dates: start: 20100603
  5. NOVORAPID [Concomitant]
     Indication: DIABETES MELLITUS
     Dosage: 12 IU, DAILY
     Route: 065
     Dates: start: 20040101
  6. NITRODERM [Concomitant]
     Indication: CARDIAC FAILURE
     Dosage: 10 MG, UNK
     Route: 065
     Dates: start: 20060101
  7. GLEEVEC [Suspect]
     Indication: GASTROINTESTINAL STROMAL TUMOUR
     Dosage: 800 MG, DAILY
     Dates: start: 20060718

REACTIONS (5)
  - GENERAL PHYSICAL CONDITION ABNORMAL [None]
  - WOUND [None]
  - DEATH [None]
  - BRONCHITIS [None]
  - ARTHRITIS [None]
